FAERS Safety Report 4376636-3 (Version None)
Quarter: 2004Q2

REPORT INFORMATION
  Report Type: 
  Country: None (occurrence: None)
  Receive Date: 20040608
  Receipt Date: 20040524
  Transmission Date: 20050107
  Serious: Yes (Hospitalization)
  Sender: FDA-Public Use
  Company Number: STA-AE-04-MTX-223

PATIENT
  Age: 74 Year
  Sex: Female

DRUGS (19)
  1. METHOTREXATE [Suspect]
     Indication: RHEUMATOID ARTHRITIS
     Dosage: 20 MG 1X PER 1WK, ORAL
     Route: 048
     Dates: start: 19861001, end: 20040105
  2. REMICADE [Suspect]
     Indication: RHEUMATOID ARTHRITIS
     Dosage: 400 MG 1X PER 6 WK, INTRAVENOUS
     Route: 042
     Dates: start: 20020408, end: 20031204
  3. PREDNISONE [Concomitant]
  4. PREVACID [Concomitant]
  5. FOLIC ACID [Concomitant]
  6. MULTIVITAMINS, PLAIN [Concomitant]
  7. FERROUS SULFATE TAB [Concomitant]
  8. CALCIUM [Concomitant]
  9. VIOXX [Concomitant]
  10. ASPIRIN [Concomitant]
  11. ATENOLOL [Concomitant]
  12. POTASSIUM CHLORIDE [Concomitant]
  13. TEQUIN [Concomitant]
  14. RITUXAN [Concomitant]
  15. NEULASTA [Concomitant]
  16. CYCLOPHOSPHAMIDE [Concomitant]
  17. DOXORUBICIN HCL [Concomitant]
  18. VINCRISTINE [Concomitant]
  19. OCUVITE (MULTIVITAMIN/MULTIMINERAL) [Concomitant]

REACTIONS (7)
  - DECREASED APPETITE [None]
  - DIZZINESS [None]
  - FEBRILE NEUTROPENIA [None]
  - HYPOTENSION [None]
  - OESOPHAGITIS [None]
  - ORAL CANDIDIASIS [None]
  - PANCYTOPENIA [None]
